FAERS Safety Report 20724206 (Version 8)
Quarter: 2025Q1

REPORT INFORMATION
  Report Type: Spontaneous
  Country: PL (occurrence: PL)
  Receive Date: 20220419
  Receipt Date: 20250213
  Transmission Date: 20250409
  Serious: Yes (Hospitalization, Other)
  Sender: ACCORD
  Company Number: PL-Accord-260896

PATIENT
  Age: 31 Year
  Sex: Male

DRUGS (7)
  1. ATORVASTATIN [Interacting]
     Active Substance: ATORVASTATIN
     Indication: Dyslipidaemia
  2. RAMIPRIL [Interacting]
     Active Substance: RAMIPRIL
     Indication: Hypertension
  3. SERTRALINE [Interacting]
     Active Substance: SERTRALINE HYDROCHLORIDE
     Indication: Affective disorder
     Dosage: INITIAL DOSE OF 50 MG IN THE MORNING
  4. TADALAFIL [Interacting]
     Active Substance: TADALAFIL
     Indication: Erectile dysfunction
  5. ALPRAZOLAM [Interacting]
     Active Substance: ALPRAZOLAM
     Indication: Insomnia
     Dosage: DOSE OF 1 MG AT NIGHT.
  6. DICLOFENAC [Interacting]
     Active Substance: DICLOFENAC
     Indication: Pain
     Dosage: 150 MILLIGRAM, QD, (150 MG, QD)
  7. AGOMELATINE [Concomitant]
     Active Substance: AGOMELATINE
     Indication: Depression

REACTIONS (8)
  - Drug interaction [Unknown]
  - Anorgasmia [Recovered/Resolved]
  - Hyperaesthesia [Recovered/Resolved]
  - Back pain [Recovered/Resolved]
  - Drug level increased [Unknown]
  - Erectile dysfunction [Recovered/Resolved]
  - Tachypnoea [Recovering/Resolving]
  - Ill-defined disorder [Unknown]
